FAERS Safety Report 11780953 (Version 2)
Quarter: 2015Q4

REPORT INFORMATION
  Report Type: Spontaneous
  Country: US (occurrence: US)
  Receive Date: 20151126
  Receipt Date: 20151210
  Transmission Date: 20160305
  Serious: Yes (Hospitalization, Other)
  Sender: FDA-Public Use
  Company Number: US-APOTEX-2015AP014857

PATIENT
  Age: 61 Year
  Sex: Male

DRUGS (6)
  1. 5-FU                               /00098801/ [Concomitant]
     Active Substance: FLUOROURACIL
     Indication: GLOTTIS CARCINOMA
     Route: 065
  2. DOCETAXEL INJECTION [Suspect]
     Active Substance: DOCETAXEL
     Indication: GLOTTIS CARCINOMA
     Route: 065
  3. 5-FU                               /00098801/ [Concomitant]
     Active Substance: FLUOROURACIL
     Indication: METASTASES TO LUNG
  4. CISPLATIN. [Concomitant]
     Active Substance: CISPLATIN
     Indication: GLOTTIS CARCINOMA
     Route: 065
  5. DOCETAXEL INJECTION [Suspect]
     Active Substance: DOCETAXEL
     Indication: METASTASES TO LUNG
  6. CISPLATIN. [Concomitant]
     Active Substance: CISPLATIN
     Indication: METASTASES TO LUNG

REACTIONS (1)
  - Traumatic lung injury [Recovered/Resolved]
